FAERS Safety Report 9580316 (Version 1)
Quarter: 2013Q3

REPORT INFORMATION
  Report Type: Spontaneous
  Country: US (occurrence: None)
  Receive Date: 20130916
  Receipt Date: 20130916
  Transmission Date: 20140515
  Serious: Yes (Other)
  Sender: FDA-Public Use
  Company Number: JPI-P-029412

PATIENT
  Age: 56 Year
  Sex: Male
  Weight: 88.45 kg

DRUGS (6)
  1. XYREM [Suspect]
     Indication: HYPERSOMNIA
     Dosage: 6 GM (3 GM,  2 IN 1 D),  ORAL
     Route: 048
     Dates: start: 20130119
  2. RISPERIDONE [Concomitant]
  3. QUETIAPINE FUMARATE [Concomitant]
  4. METHYLPHENIDATE HYDROCHLORIDE [Concomitant]
  5. PROPAFENONE HYDROCHLORIDE [Concomitant]
  6. LOSARTAN [Concomitant]

REACTIONS (1)
  - Blood pressure increased [None]
